FAERS Safety Report 7043637-6 (Version None)
Quarter: 2010Q4

REPORT INFORMATION
  Report Type: 
  Country: None (occurrence: None)
  Receive Date: 20101013
  Receipt Date: 20101005
  Transmission Date: 20110411
  Serious: Yes (Hospitalization)
  Sender: FDA-Public Use
  Company Number: B0678971A

PATIENT
  Sex: Female

DRUGS (1)
  1. AMOXICILLIN AND CLAVULANATE POTASSIUM [Suspect]
     Dosage: 2UNIT PER DAY
     Route: 048
     Dates: start: 20100611, end: 20100613

REACTIONS (2)
  - HYPERSENSITIVITY [None]
  - PRURITUS [None]
